FAERS Safety Report 11301794 (Version 1)
Quarter: 2015Q3

REPORT INFORMATION
  Report Type: Spontaneous
  Country: US (occurrence: US)
  Receive Date: 20150722
  Receipt Date: 20150722
  Transmission Date: 20151125
  Serious: No
  Sender: FDA-Public Use
  Company Number: US-ELI_LILLY_AND_COMPANY-US201007001986

PATIENT
  Age: 44 Year
  Sex: Female

DRUGS (3)
  1. HUMATROPE [Suspect]
     Active Substance: SOMATROPIN
     Dosage: 0.4 MG, DAILY (1/D)
  2. HUMATROPE [Suspect]
     Active Substance: SOMATROPIN
     Dosage: 20 MG, PER INJECTION
     Route: 065
  3. HUMATROPE [Suspect]
     Active Substance: SOMATROPIN
     Dosage: 0.3 MG, DAILY (1/D)

REACTIONS (8)
  - Headache [Recovering/Resolving]
  - Nausea [Recovering/Resolving]
  - Injection site extravasation [Unknown]
  - Incorrect dose administered [Unknown]
  - Malaise [Recovering/Resolving]
  - Peripheral swelling [Recovering/Resolving]
  - Drug dispensing error [Unknown]
  - Drug dose omission [Unknown]

NARRATIVE: CASE EVENT DATE: 20100707
